FAERS Safety Report 6597062-2 (Version None)
Quarter: 2010Q1

REPORT INFORMATION
  Report Type: 
  Country: None (occurrence: None)
  Receive Date: 20100223
  Receipt Date: 20100216
  Transmission Date: 20100710
  Serious: Yes (Hospitalization)
  Sender: FDA-Public Use
  Company Number: B0627392A

PATIENT
  Sex: Female

DRUGS (4)
  1. SERETIDE [Suspect]
     Indication: ASTHMA
     Dosage: 250MCG TWICE PER DAY
     Route: 055
     Dates: start: 20070101, end: 20100115
  2. METHYCOBAL [Concomitant]
     Dosage: 1500MG PER DAY
     Route: 048
     Dates: start: 20100104, end: 20100115
  3. ALINAMIN-F [Concomitant]
     Dosage: 75MG PER DAY
     Route: 048
     Dates: start: 20100104, end: 20100115
  4. DOGMATYL [Concomitant]
     Dosage: 150MG PER DAY
     Route: 048
     Dates: start: 20100104, end: 20100125

REACTIONS (4)
  - BLOOD POTASSIUM DECREASED [None]
  - DYSPHAGIA [None]
  - DYSPHONIA [None]
  - MUSCLE TWITCHING [None]
